FAERS Safety Report 8773813 (Version 2)
Quarter: 2012Q4

REPORT INFORMATION
  Report Type: 
  Country: US (occurrence: US)
  Receive Date: 20120907
  Receipt Date: 20121029
  Transmission Date: 20130627
  Serious: Yes (Other)
  Sender: FDA-Public Use
  Company Number: US-ALLERGAN-1212006US

PATIENT
  Age: 64 Year
  Sex: Female

DRUGS (4)
  1. REFRESH OPTIVE SENSITIVE [Suspect]
     Indication: DRY EYES
     Dosage: 2 Gtt, qid
     Route: 047
     Dates: start: 201206, end: 20120824
  2. XANAX [Concomitant]
     Indication: ANXIETY
     Dosage: UNK
  3. AMBIEN [Concomitant]
     Indication: INSOMNIA
     Dosage: 1 DF, qhs
     Route: 048
  4. REFRESH P.M. [Concomitant]
     Indication: DRY EYE
     Dosage: 1 ribbon, ou, qhs
     Route: 047
     Dates: start: 201206

REACTIONS (3)
  - Corneal abrasion [Not Recovered/Not Resolved]
  - Eye pain [Not Recovered/Not Resolved]
  - Photophobia [Not Recovered/Not Resolved]
